FAERS Safety Report 9325411 (Version 3)
Quarter: 2013Q3

REPORT INFORMATION
  Report Type: Report from Study
  Country: PE (occurrence: PE)
  Receive Date: 20130604
  Receipt Date: 20130718
  Transmission Date: 20140515
  Serious: Yes (Death, Hospitalization)
  Sender: FDA-Public Use
  Company Number: PE-ROCHE-1221356

PATIENT
  Age: 62 Year
  Sex: Male
  Weight: 52 kg

DRUGS (4)
  1. TRASTUZUMAB [Suspect]
     Indication: GASTRIC CANCER
     Dosage: LAST DOSE PRIOR TO THE EVENT 02/APR/2013, 520 MG
     Route: 042
     Dates: start: 20130128
  2. CAPECITABINE [Suspect]
     Indication: GASTRIC CANCER
     Dosage: LAST DOSE PRIOR TO THE EVENT 02/APR/2013, DAILY DOSE 1500 MG
     Route: 048
     Dates: start: 20130128
  3. CISPLATIN [Suspect]
     Indication: GASTRIC CANCER
     Dosage: LAST DOSE PRIOR TO THE EVENT 02/APR/2013, 88 MG
     Route: 042
     Dates: start: 20130128
  4. ALBUMIN [Concomitant]
     Indication: HYPOALBUMINAEMIA
     Route: 065
     Dates: start: 20130507, end: 20130520

REACTIONS (2)
  - Pneumonia [Fatal]
  - Diarrhoea [Recovered/Resolved]
